FAERS Safety Report 5762887-X (Version None)
Quarter: 2008Q2

REPORT INFORMATION
  Report Type: 
  Country: None (occurrence: None)
  Receive Date: 20080609
  Receipt Date: 20080429
  Transmission Date: 20081010
  Serious: No
  Sender: FDA-Public Use
  Company Number: US-BAYER-200811692BCC

PATIENT
  Age: 42 Year
  Sex: Male
  Weight: 77 kg

DRUGS (1)
  1. ALEVE [Suspect]
     Indication: BACK PAIN
     Dosage: TOTAL DAILY DOSE: 440 MG  UNIT DOSE: 220 MG
     Route: 048
     Dates: start: 20080308, end: 20080429

REACTIONS (3)
  - BLOOD PRESSURE INCREASED [None]
  - FOREIGN BODY TRAUMA [None]
  - PYREXIA [None]
